FAERS Safety Report 7909356-6 (Version None)
Quarter: 2011Q4

REPORT INFORMATION
  Report Type: 
  Country: None (occurrence: None)
  Receive Date: 20111111
  Receipt Date: 20111108
  Transmission Date: 20120403
  Serious: Yes (Death, Hospitalization)
  Sender: FDA-Public Use
  Company Number: US-EISAI INC-E2020-09852-SPO-US

PATIENT
  Age: 75 Year
  Sex: Female

DRUGS (5)
  1. XANAX [Concomitant]
     Dosage: UNKNOWN
     Dates: start: 20100101, end: 20100101
  2. ARICEPT [Suspect]
     Route: 048
     Dates: start: 20070101, end: 20070101
  3. ARICEPT [Suspect]
     Route: 048
     Dates: start: 20070101, end: 20100101
  4. LIPITOR [Suspect]
     Dosage: UNKNOWN
     Dates: end: 20100101
  5. COUMADIN [Suspect]
     Dosage: UNKNOWN
     Dates: end: 20100101

REACTIONS (1)
  - DISEASE PROGRESSION [None]
